FAERS Safety Report 5353256-5 (Version None)
Quarter: 2007Q2

REPORT INFORMATION
  Report Type: 
  Country: None (occurrence: None)
  Receive Date: 20070518
  Receipt Date: 20070124
  Transmission Date: 20071010
  Serious: No
  Sender: FDA-Public Use
  Company Number: TPA2007A00205

PATIENT
  Age: 51 Year
  Sex: Male

DRUGS (3)
  1. ROZEREM [Suspect]
     Indication: INSOMNIA
     Dosage: AS REQUIRED, PER ORAL
     Route: 048
     Dates: start: 20060401, end: 20061101
  2. LUNESTA [Suspect]
     Indication: INSOMNIA
     Dosage: 2 MG, AS REQUIRED, PER ORAL
     Route: 048
     Dates: start: 20051201
  3. MULTI-VITAMINS [Concomitant]

REACTIONS (2)
  - DRUG INEFFECTIVE [None]
  - ERECTILE DYSFUNCTION [None]
